FAERS Safety Report 11903377 (Version 1)
Quarter: 2016Q1

REPORT INFORMATION
  Report Type: Spontaneous
  Country: BR (occurrence: BR)
  Receive Date: 20160110
  Receipt Date: 20160110
  Transmission Date: 20160526
  Serious: Yes (Hospitalization)
  Sender: FDA-Public Use
  Company Number: PHHY2016BR001196

PATIENT
  Sex: Female

DRUGS (6)
  1. TEGRETOL [Suspect]
     Active Substance: CARBAMAZEPINE
     Indication: SEIZURE
     Dosage: 200 MG, QD
     Route: 065
  2. TORVAL [Suspect]
     Active Substance: VALPROIC ACID
     Indication: SEIZURE
     Dosage: 300 MG, QD
     Route: 065
  3. TORVAL [Suspect]
     Active Substance: VALPROIC ACID
     Dosage: 500 MG, UNK
     Route: 065
  4. DEPO-PROVERA [Suspect]
     Active Substance: MEDROXYPROGESTERONE ACETATE
     Indication: CONTRACEPTION
     Dosage: 1 DF, UNK
     Route: 065
  5. GARDENAL//PHENOBARBITAL [Suspect]
     Active Substance: PHENOBARBITAL
     Indication: SEIZURE
     Dosage: 100 MG, QD
     Route: 065
  6. RISS//RISPERIDONE [Suspect]
     Active Substance: RISPERIDONE
     Indication: PRODUCT USED FOR UNKNOWN INDICATION
     Dosage: 1 MG, UNK
     Route: 065

REACTIONS (8)
  - Syncope [Unknown]
  - Dyspnoea [Unknown]
  - Loss of consciousness [Unknown]
  - General physical health deterioration [Unknown]
  - Hypersomnia [Unknown]
  - Menstrual disorder [Unknown]
  - Malaise [Unknown]
  - Gastrointestinal disorder [Unknown]
